FAERS Safety Report 20432449 (Version 6)
Quarter: 2022Q2

REPORT INFORMATION
  Report Type: Spontaneous
  Country: US (occurrence: US)
  Receive Date: 20220204
  Receipt Date: 20220420
  Transmission Date: 20220721
  Serious: No
  Sender: FDA-Public Use
  Company Number: US-TEVA-2022-US-2004495

PATIENT
  Age: 78 Year
  Sex: Female

DRUGS (2)
  1. PROAIR HFA [Suspect]
     Active Substance: ALBUTEROL SULFATE
     Indication: Emphysema
     Route: 065
     Dates: start: 2005
  2. PROAIR HFA [Suspect]
     Active Substance: ALBUTEROL SULFATE
     Indication: Chronic obstructive pulmonary disease

REACTIONS (6)
  - Nervousness [Unknown]
  - Dyspnoea [Unknown]
  - Product supply issue [Unknown]
  - Expired product administered [Unknown]
  - Anxiety [Unknown]
  - Product use in unapproved indication [Unknown]
